FAERS Safety Report 22013581 (Version 1)
Quarter: 2023Q1

REPORT INFORMATION
  Report Type: Spontaneous
  Country: US (occurrence: US)
  Receive Date: 20230220
  Receipt Date: 20230220
  Transmission Date: 20230418
  Serious: Yes (Other)
  Sender: FDA-Public Use
  Company Number: US-JNJFOC-20230225745

PATIENT
  Age: 18 Year
  Sex: Male
  Weight: 79.904 kg

DRUGS (3)
  1. INVEGA SUSTENNA [Suspect]
     Active Substance: PALIPERIDONE PALMITATE
     Indication: Psychotic disorder
     Dosage: DAY 0
     Route: 030
     Dates: start: 20220811
  2. INVEGA SUSTENNA [Suspect]
     Active Substance: PALIPERIDONE PALMITATE
     Dosage: DAY 8
     Route: 030
     Dates: start: 20220819
  3. INVEGA SUSTENNA [Suspect]
     Active Substance: PALIPERIDONE PALMITATE

REACTIONS (18)
  - Mental impairment [Unknown]
  - Hallucination [Unknown]
  - Erectile dysfunction [Unknown]
  - Weight increased [Recovering/Resolving]
  - Depressed level of consciousness [Unknown]
  - Amnesia [Unknown]
  - Emotional poverty [Unknown]
  - Blood prolactin increased [Recovered/Resolved]
  - Thinking abnormal [Unknown]
  - Speech disorder [Unknown]
  - Anxiety [Not Recovered/Not Resolved]
  - Dizziness [Unknown]
  - Somnolence [Unknown]
  - Nausea [Unknown]
  - Loss of libido [Unknown]
  - Bradyphrenia [Unknown]
  - Depression [Unknown]
  - Social avoidant behaviour [Unknown]
